FAERS Safety Report 20816387 (Version 1)
Quarter: 2022Q2

REPORT INFORMATION
  Report Type: Report from Study
  Country: US (occurrence: US)
  Receive Date: 20220512
  Receipt Date: 20220512
  Transmission Date: 20220720
  Serious: Yes (Death)
  Sender: FDA-Public Use
  Company Number: US-ABBVIE-22K-163-4390505-00

PATIENT
  Age: 74 Year
  Sex: Male
  Weight: 86.714 kg

DRUGS (18)
  1. VENCLEXTA [Suspect]
     Active Substance: VENETOCLAX
     Indication: Chronic lymphocytic leukaemia (in remission)
     Dosage: TAKE WHOLE WITH WATER AND MEAL AT APPROXIMATELY THE SAME TIME EACH DAY
     Route: 065
  2. VENCLEXTA [Suspect]
     Active Substance: VENETOCLAX
     Dosage: THIRD OR GREATER TAKE WHOLE WITH WATER AND MEAL AT APPROXIMATELY THE SAME TIME EACH DAY
     Route: 048
  3. OBINUTUZUMAB [Suspect]
     Active Substance: OBINUTUZUMAB
     Indication: Product used for unknown indication
     Dosage: 1000MG/ 40ML SOLUTION
     Route: 042
     Dates: start: 20220328
  4. EPINEPHRINE [Concomitant]
     Active Substance: EPINEPHRINE
     Indication: Hypersensitivity
     Dosage: 1MG/1 ML SOLUTION AS NEEDED
     Route: 030
  5. DIPHENHYDRAMINE [Concomitant]
     Active Substance: DIPHENHYDRAMINE
     Indication: Hypersensitivity
     Route: 065
  6. FAMOTIDINE [Concomitant]
     Active Substance: FAMOTIDINE
     Indication: Hypersensitivity
     Dosage: 10MG/ML SOLUTION AS NEEDED
     Route: 042
  7. HYDROCORTISONE [Concomitant]
     Active Substance: HYDROCORTISONE
     Indication: Hypersensitivity
     Dosage: AS NEEDED
     Route: 042
  8. METHYLPREDNISOLONE [Concomitant]
     Active Substance: METHYLPREDNISOLONE
     Indication: Hypersensitivity
     Dosage: AS NEEDED
     Route: 042
  9. ALLOPURINOL [Concomitant]
     Active Substance: ALLOPURINOL
     Indication: Product used for unknown indication
     Route: 048
  10. FAMCICLOVIR [Concomitant]
     Active Substance: FAMCICLOVIR
     Indication: Product used for unknown indication
     Dosage: 2 TIMES A DAY
     Route: 048
  11. ALBUTEROL SULFATE [Concomitant]
     Active Substance: ALBUTEROL SULFATE
     Indication: Product used for unknown indication
     Dosage: INHALER 90MCG/ACTUATION
     Route: 045
  12. ASPIRIN [Concomitant]
     Active Substance: ASPIRIN
     Indication: Product used for unknown indication
     Dosage: TABLET DR
     Route: 048
  13. FERROUS SULFATE [Concomitant]
     Active Substance: FERROUS SULFATE
     Indication: Product used for unknown indication
     Dosage: IRON TABLET
     Route: 048
  14. METOPROLOL [Concomitant]
     Active Substance: METOPROLOL
     Indication: Product used for unknown indication
     Dosage: EXTENDED RELEASE TABLET
     Route: 048
  15. OLMESARTAN [Concomitant]
     Active Substance: OLMESARTAN
     Indication: Product used for unknown indication
     Route: 048
  16. OMEPRAZOLE [Concomitant]
     Active Substance: OMEPRAZOLE
     Indication: Product used for unknown indication
     Dosage: DELAYED RELEASE TABLET
     Route: 048
  17. PRAVASTATIN SODIUM [Concomitant]
     Active Substance: PRAVASTATIN SODIUM
     Indication: Product used for unknown indication
     Route: 048
  18. TENOFOVIR [Concomitant]
     Active Substance: TENOFOVIR
     Indication: Product used for unknown indication
     Route: 048

REACTIONS (2)
  - Death [Fatal]
  - Hospice care [Unknown]

NARRATIVE: CASE EVENT DATE: 20220411
